FAERS Safety Report 15653650 (Version 1)
Quarter: 2018Q4

REPORT INFORMATION
  Report Type: Spontaneous
  Country: US (occurrence: US)
  Receive Date: 20181122
  Receipt Date: 20181122
  Transmission Date: 20190205
  Serious: Yes (Disabling)
  Sender: FDA-Public Use
  Company Number: None

PATIENT
  Age: 26 Year
  Sex: Female
  Weight: 51.75 kg

DRUGS (1)
  1. CLARAVIS [Suspect]
     Active Substance: ISOTRETINOIN
     Indication: ACNE
     Dosage: ?          QUANTITY:1 CAPSULE(S);?
     Route: 048
     Dates: start: 20130615, end: 20140105

REACTIONS (21)
  - Disturbance in attention [None]
  - Alopecia [None]
  - Paralysis [None]
  - Ill-defined disorder [None]
  - Fibromyalgia [None]
  - Skin disorder [None]
  - Arthritis [None]
  - Photosensitivity reaction [None]
  - Agitation [None]
  - Myalgia [None]
  - Joint noise [None]
  - Tremor [None]
  - Gait inability [None]
  - Back pain [None]
  - Pain in extremity [None]
  - Neuralgia [None]
  - Bone pain [None]
  - Arthralgia [None]
  - Anxiety [None]
  - Depression [None]
  - Suicide attempt [None]

NARRATIVE: CASE EVENT DATE: 20140511
